FAERS Safety Report 9562206 (Version 1)
Quarter: 2013Q3

REPORT INFORMATION
  Report Type: Spontaneous
  Country: FR (occurrence: FR)
  Receive Date: 20130927
  Receipt Date: 20130927
  Transmission Date: 20140515
  Serious: Yes (Hospitalization)
  Sender: FDA-Public Use
  Company Number: PHHY2013FR106979

PATIENT
  Age: 76 Year
  Sex: Male

DRUGS (6)
  1. ACLASTA [Suspect]
     Indication: OSTEITIS DEFORMANS
     Dosage: 5 MG, ONCE
     Route: 042
     Dates: start: 20121001
  2. ISOPTINE [Concomitant]
     Dosage: 1.5 DF, QD
     Route: 048
     Dates: start: 2003
  3. LASILIX [Concomitant]
     Dosage: 0.25 DF, QD
     Route: 048
     Dates: start: 200811
  4. PLAVIX [Concomitant]
     Dosage: 1 DF, QD
     Route: 048
  5. CRESTOR [Concomitant]
     Dosage: 1 DF, QD
     Route: 048
     Dates: start: 2007
  6. ARANESP [Concomitant]
     Dosage: 40 UG,PER MONTH
     Route: 058

REACTIONS (4)
  - Insomnia [Recovered/Resolved]
  - Hypocalcaemia [Recovered/Resolved]
  - Asthenia [Recovered/Resolved]
  - Muscle spasms [Recovered/Resolved]
